FAERS Safety Report 20574013 (Version 1)
Quarter: 2022Q1

REPORT INFORMATION
  Report Type: Spontaneous
  Country: US (occurrence: US)
  Receive Date: 20220309
  Receipt Date: 20220309
  Transmission Date: 20220423
  Serious: No
  Sender: FDA-Public Use
  Company Number: US-TEVA-2022-US-2008468

PATIENT
  Age: 36 Year
  Sex: Female

DRUGS (1)
  1. ETHINYL ESTRADIOL\ETONOGESTREL [Suspect]
     Active Substance: ETHINYL ESTRADIOL\ETONOGESTREL
     Dosage: DOSAGE FORM: VAGINAL RING   STRENGTH: 0.120 MG / 0.015 MG
     Route: 067

REACTIONS (4)
  - Drug ineffective [Unknown]
  - Complication of device insertion [Unknown]
  - Administration site pain [Unknown]
  - Device defective [Unknown]

NARRATIVE: CASE EVENT DATE: 20220207
